FAERS Safety Report 8678779 (Version 4)
Quarter: 2013Q1

REPORT INFORMATION
  Report Type: Report from Study
  Country: NL (occurrence: NL)
  Receive Date: 20120723
  Receipt Date: 20130219
  Transmission Date: 20140127
  Serious: Yes (Life-Threatening, Hospitalization, Other)
  Sender: FDA-Public Use
  Company Number: NL-ABBOTT-12P-114-0958363-01

PATIENT
  Age: 75 Year
  Sex: Female
  Weight: 84 kg

DRUGS (8)
  1. HUMIRA [Suspect]
     Indication: PSORIASIS
     Route: 058
     Dates: start: 20091221, end: 20091221
  2. HUMIRA [Suspect]
     Route: 058
  3. ACETYLSALICYLZUUR [Concomitant]
     Indication: AORTIC ANEURYSM
     Dates: start: 20090129
  4. ENALAPRIL [Concomitant]
     Indication: HYPERTENSION
  5. HYDROXYZINE [Concomitant]
     Indication: PRURITUS
  6. DOVOBET [Concomitant]
     Indication: PSORIASIS
  7. EMOVATE [Concomitant]
     Indication: PSORIASIS
  8. CLOPIDOGREL [Concomitant]
     Indication: AORTIC ANEURYSM
     Dates: start: 20110315, end: 20120530

REACTIONS (1)
  - Pulmonary embolism [Recovered/Resolved]
